FAERS Safety Report 6194866-5 (Version None)
Quarter: 2009Q2

REPORT INFORMATION
  Report Type: 
  Country: None (occurrence: None)
  Receive Date: 20090519
  Receipt Date: 20081014
  Transmission Date: 20091009
  Serious: No
  Sender: FDA-Public Use
  Company Number: US-TYCO HEALTHCARE/MALLINCKRODT-T200801659

PATIENT

DRUGS (1)
  1. METHADONE [Suspect]
     Dosage: UNK, TID
     Route: 048
     Dates: start: 20080101, end: 20080101

REACTIONS (1)
  - SOMNOLENCE [None]
